FAERS Safety Report 9057534 (Version 1)
Quarter: 2013Q1

REPORT INFORMATION
  Report Type: Spontaneous
  Country: US (occurrence: None)
  Receive Date: 20130204
  Receipt Date: 20130204
  Transmission Date: 20140127
  Serious: Yes (Hospitalization, Disabling)
  Sender: FDA-Public Use
  Company Number: None

PATIENT
  Age: 43 Year
  Sex: Male
  Weight: 99.79 kg

DRUGS (1)
  1. AVELOX [Suspect]
     Indication: PNEUMONIA
     Route: 048
     Dates: start: 20121121, end: 20121124

REACTIONS (2)
  - Arthralgia [None]
  - Myalgia [None]
